FAERS Safety Report 5572305-2 (Version None)
Quarter: 2007Q4

REPORT INFORMATION
  Report Type: 
  Country: None (occurrence: None)
  Receive Date: 20071221
  Receipt Date: 20071214
  Transmission Date: 20080405
  Serious: Yes (Hospitalization)
  Sender: FDA-Public Use
  Company Number: SE-PFIZER INC-2007105196

PATIENT
  Sex: Female

DRUGS (3)
  1. AROMASIN [Suspect]
     Indication: ENDOMETRIAL CANCER
     Dates: start: 20050704, end: 20071210
  2. ATACAND [Concomitant]
  3. ACETAMINOPHEN [Concomitant]

REACTIONS (1)
  - DEEP VEIN THROMBOSIS [None]
